FAERS Safety Report 6994234-X (Version None)
Quarter: 2010Q3

REPORT INFORMATION
  Report Type: 
  Country: None (occurrence: None)
  Receive Date: 20100917
  Receipt Date: 20100311
  Transmission Date: 20110219
  Serious: Yes (Other)
  Sender: FDA-Public Use
  Company Number: US-ASTRAZENECA-2008UW13536

PATIENT
  Age: 12964 Day
  Sex: Male

DRUGS (4)
  1. SEROQUEL [Suspect]
     Route: 048
     Dates: start: 20030829
  2. LAMICTAL [Concomitant]
     Dates: start: 20030703
  3. SUDAFED 12 HOUR [Concomitant]
     Indication: NASAL CONGESTION
     Dates: start: 20050121
  4. ROBITUSSIN DM [Concomitant]
     Indication: COUGH
     Dates: start: 20050121

REACTIONS (3)
  - DIABETES MELLITUS [None]
  - KETOACIDOSIS [None]
  - PANCREATITIS [None]
